FAERS Safety Report 5294751-7 (Version None)
Quarter: 2007Q2

REPORT INFORMATION
  Report Type: 
  Country: None (occurrence: None)
  Receive Date: 20070406
  Receipt Date: 20070328
  Transmission Date: 20071010
  Serious: Yes (Disabling, Other)
  Sender: FDA-Public Use
  Company Number: 012767

PATIENT
  Age: 76 Year
  Sex: Female

DRUGS (26)
  1. PRIALT [Suspect]
     Indication: PROCEDURAL PAIN
     Dosage: SEE IMAGE
     Route: 037
     Dates: start: 20050801, end: 20050101
  2. PRIALT [Suspect]
     Indication: SPINAL LAMINECTOMY
     Dosage: SEE IMAGE
     Route: 037
     Dates: start: 20050801, end: 20050101
  3. PRIALT [Suspect]
     Indication: PROCEDURAL PAIN
     Dosage: SEE IMAGE
     Route: 037
     Dates: start: 20050101, end: 20051001
  4. PRIALT [Suspect]
     Indication: SPINAL LAMINECTOMY
     Dosage: SEE IMAGE
     Route: 037
     Dates: start: 20050101, end: 20051001
  5. PRIALT [Suspect]
     Indication: PROCEDURAL PAIN
     Dosage: SEE IMAGE
     Route: 037
     Dates: start: 20060101, end: 20060101
  6. PRIALT [Suspect]
     Indication: SPINAL LAMINECTOMY
     Dosage: SEE IMAGE
     Route: 037
     Dates: start: 20060101, end: 20060101
  7. PRIALT [Suspect]
     Indication: PROCEDURAL PAIN
     Dosage: SEE IMAGE
     Route: 037
     Dates: end: 20060101
  8. PRIALT [Suspect]
     Indication: SPINAL LAMINECTOMY
     Dosage: SEE IMAGE
     Route: 037
     Dates: end: 20060101
  9. PRIALT [Suspect]
     Indication: PROCEDURAL PAIN
     Dosage: SEE IMAGE
     Route: 037
     Dates: start: 20060101, end: 20070123
  10. PRIALT [Suspect]
     Indication: SPINAL LAMINECTOMY
     Dosage: SEE IMAGE
     Route: 037
     Dates: start: 20060101, end: 20070123
  11. PRIALT [Suspect]
     Indication: PROCEDURAL PAIN
     Dosage: SEE IMAGE
     Route: 037
     Dates: start: 20051001
  12. PRIALT [Suspect]
     Indication: SPINAL LAMINECTOMY
     Dosage: SEE IMAGE
     Route: 037
     Dates: start: 20051001
  13. HYDROMORPHONE HCL [Concomitant]
  14. BACLOFEN [Concomitant]
  15. AVELOX [Concomitant]
  16. EVISTA [Concomitant]
  17. TOPAMAX [Concomitant]
  18. HYDROCODONE (HYDROCODONE) [Concomitant]
  19. AVAPRO [Concomitant]
  20. FUROSEMIDE [Concomitant]
  21. LIPITOR /01326101/(ATORVASTATIN) [Concomitant]
  22. MIDRIN (DICHLORALPHENAZONE, ISOMETHEPTENE, PARACETAMOL) [Concomitant]
  23. PLAVIX [Concomitant]
  24. SPIRONOLACTONE [Concomitant]
  25. SYNTHROID [Concomitant]
  26. ZYRTEC [Concomitant]

REACTIONS (13)
  - ACTIVITIES OF DAILY LIVING IMPAIRED [None]
  - ASTHENIA [None]
  - COORDINATION ABNORMAL [None]
  - DIZZINESS [None]
  - DYSAESTHESIA [None]
  - FALL [None]
  - GRANULOMA [None]
  - HYPOAESTHESIA [None]
  - OEDEMA PERIPHERAL [None]
  - PERONEAL NERVE PALSY [None]
  - ROAD TRAFFIC ACCIDENT [None]
  - SOMNOLENCE [None]
  - WALKING AID USER [None]
